FAERS Safety Report 5334712-2 (Version None)
Quarter: 2007Q2

REPORT INFORMATION
  Report Type: 
  Country: None (occurrence: None)
  Receive Date: 20070521
  Receipt Date: 20070515
  Transmission Date: 20071010
  Serious: Yes (Hospitalization)
  Sender: FDA-Public Use
  Company Number: 2007SP008051

PATIENT
  Age: 56 Year
  Sex: Female
  Weight: 55.7924 kg

DRUGS (2)
  1. PEG-INTRON [Suspect]
     Indication: HEPATITIS C
     Dosage: 120 MCG; QW
     Dates: start: 20070403, end: 20070417
  2. REBETOL [Suspect]
     Indication: HEPATITIS C
     Dosage: 200 MG; BID; PO
     Route: 048
     Dates: start: 20070403, end: 20070417

REACTIONS (9)
  - DEHYDRATION [None]
  - DYSGEUSIA [None]
  - EUPHORIC MOOD [None]
  - FEELING ABNORMAL [None]
  - INFLUENZA LIKE ILLNESS [None]
  - MEMORY IMPAIRMENT [None]
  - POST PROCEDURAL COMPLICATION [None]
  - RETCHING [None]
  - WEIGHT DECREASED [None]
